FAERS Safety Report 6656210-6 (Version None)
Quarter: 2010Q1

REPORT INFORMATION
  Report Type: 
  Country: None (occurrence: None)
  Receive Date: 20100317
  Receipt Date: 20091203
  Transmission Date: 20100710
  Serious: No
  Sender: FDA-Public Use
  Company Number: DSA_42132_2009

PATIENT
  Sex: Female

DRUGS (1)
  1. XENAZINE [Suspect]
     Indication: DYSKINESIA
     Dosage: (37.5 MG BID ORAL)
     Route: 048
     Dates: start: 20090401

REACTIONS (3)
  - DEPRESSED MOOD [None]
  - FATIGUE [None]
  - LISTLESS [None]
